FAERS Safety Report 8463970-0 (Version None)
Quarter: 2012Q2

REPORT INFORMATION
  Report Type: 
  Country: None (occurrence: None)
  Receive Date: 20120625
  Receipt Date: 20120615
  Transmission Date: 20120825
  Serious: Yes (Other)
  Sender: FDA-Public Use
  Company Number: US-ABBOTT-12P-163-0946700-00

PATIENT
  Sex: Female
  Weight: 39.498 kg

DRUGS (7)
  1. NAPROSYN [Concomitant]
     Indication: JUVENILE ARTHRITIS
  2. HUMIRA [Suspect]
     Indication: JUVENILE ARTHRITIS
     Dates: start: 20110601, end: 20120401
  3. GENERIC CLARITIN [Concomitant]
     Indication: HYPERSENSITIVITY
  4. KLONOPIN [Concomitant]
     Indication: ANXIETY
  5. UNKNOWN MEDICATION [Concomitant]
     Indication: CONSTIPATION
  6. AMBIEN [Concomitant]
     Indication: INSOMNIA
  7. FLONASE [Concomitant]
     Indication: HYPERSENSITIVITY

REACTIONS (16)
  - NERVE INJURY [None]
  - WEIGHT DECREASED [None]
  - JOINT DESTRUCTION [None]
  - INJECTION SITE PAIN [None]
  - PAIN IN EXTREMITY [None]
  - FIBROMYALGIA [None]
  - RESPIRATION ABNORMAL [None]
  - HIP ARTHROPLASTY [None]
  - JOINT STIFFNESS [None]
  - KNEE ARTHROPLASTY [None]
  - SLEEP APNOEA SYNDROME [None]
  - DEFORMITY [None]
  - FATIGUE [None]
  - ARTHRALGIA [None]
  - EAR INFECTION [None]
  - INTERVERTEBRAL DISC PROTRUSION [None]
